FAERS Safety Report 25249173 (Version 1)
Quarter: 2025Q2

REPORT INFORMATION
  Report Type: Spontaneous
  Country: US (occurrence: US)
  Receive Date: 20250429
  Receipt Date: 20250429
  Transmission Date: 20250716
  Serious: Yes (Hospitalization, Other)
  Sender: ASTELLAS
  Company Number: US-ASTELLAS-2025-AER-022405

PATIENT
  Age: 72 Year
  Sex: Male

DRUGS (6)
  1. TACROLIMUS [Interacting]
     Active Substance: TACROLIMUS
     Indication: Renal transplant
     Route: 065
     Dates: start: 2018
  2. TACROLIMUS [Interacting]
     Active Substance: TACROLIMUS
     Dosage: RESUMED, EXTENDED-RELEASE FORM
     Route: 065
  3. PAXLOVID [Interacting]
     Active Substance: NIRMATRELVIR\RITONAVIR
     Indication: COVID-19
     Route: 065
  4. PHENYTOIN [Interacting]
     Active Substance: PHENYTOIN
     Indication: Drug metabolising enzyme increased
     Route: 042
  5. PREDNISONE [Concomitant]
     Active Substance: PREDNISONE
     Indication: Renal transplant
     Route: 065
     Dates: start: 2018
  6. MYCOPHENOLATE MOFETIL [Concomitant]
     Active Substance: MYCOPHENOLATE MOFETIL
     Indication: Renal transplant
     Route: 065
     Dates: start: 2018

REACTIONS (5)
  - Toxicity to various agents [Recovered/Resolved]
  - Acute kidney injury [Recovering/Resolving]
  - COVID-19 [Unknown]
  - Pyuria [Unknown]
  - Drug interaction [Unknown]
